FAERS Safety Report 24262298 (Version 1)
Quarter: 2024Q3

REPORT INFORMATION
  Report Type: Report from Study
  Country: US (occurrence: US)
  Receive Date: 20240829
  Receipt Date: 20240829
  Transmission Date: 20241016
  Serious: Yes (Other)
  Sender: BOSTON SCIENTIFIC
  Company Number: US-BSC-2023000122

PATIENT
  Age: 65 Year
  Sex: Female

DRUGS (1)
  1. VARITHENA [Suspect]
     Active Substance: POLIDOCANOL
     Indication: Varicose vein
     Dates: start: 20190325

REACTIONS (2)
  - Peripheral vein thrombus extension [Recovered/Resolved]
  - Off label use [Unknown]

NARRATIVE: CASE EVENT DATE: 20190325
